FAERS Safety Report 6604220-7 (Version None)
Quarter: 2010Q1

REPORT INFORMATION
  Report Type: 
  Country: None (occurrence: None)
  Receive Date: 20100226
  Receipt Date: 20090806
  Transmission Date: 20100710
  Serious: No
  Sender: FDA-Public Use
  Company Number: A0795885A

PATIENT
  Age: 46 Year
  Sex: Male

DRUGS (5)
  1. LAMICTAL CD [Suspect]
     Indication: BIPOLAR DISORDER
     Dosage: 100MG TWICE PER DAY
     Route: 048
     Dates: start: 20090408
  2. SEROQUEL [Suspect]
     Indication: DRUG USE FOR UNKNOWN INDICATION
  3. ABILIFY [Suspect]
     Indication: DRUG USE FOR UNKNOWN INDICATION
  4. NEURONTIN [Concomitant]
  5. SOMA [Concomitant]

REACTIONS (2)
  - ASTHENIA [None]
  - EJACULATION FAILURE [None]
